FAERS Safety Report 14212071 (Version 1)
Quarter: 2017Q4

REPORT INFORMATION
  Report Type: Spontaneous
  Country: US (occurrence: US)
  Receive Date: 20171121
  Receipt Date: 20171121
  Transmission Date: 20180321
  Serious: Yes (Other)
  Sender: FDA-Public Use
  Company Number: None

PATIENT
  Age: 77 Year
  Sex: Female
  Weight: 63 kg

DRUGS (1)
  1. DIPHENOXYLATE [Suspect]
     Active Substance: DIPHENOXYLATE
     Indication: GASTROINTESTINAL DISORDER
     Dosage: ?          QUANTITY:90 TABLET(S);?
     Route: 048

REACTIONS (5)
  - Diarrhoea [None]
  - Dyspnoea [None]
  - Asthenia [None]
  - Recalled product [None]
  - Abdominal pain upper [None]

NARRATIVE: CASE EVENT DATE: 20171105
